FAERS Safety Report 8019033-1 (Version None)
Quarter: 2011Q4

REPORT INFORMATION
  Report Type: 
  Country: None (occurrence: None)
  Receive Date: 20111227
  Receipt Date: 20111216
  Transmission Date: 20120403
  Serious: Yes (Death, Hospitalization)
  Sender: FDA-Public Use
  Company Number: UTC-013619

PATIENT
  Age: 27 Year
  Sex: Male

DRUGS (2)
  1. FLOLAN [Suspect]
  2. TYVASO [Suspect]
     Dosage: INHALATION

REACTIONS (1)
  - DYSPNOEA [None]
